FAERS Safety Report 8550234-X (Version None)
Quarter: 2012Q3

REPORT INFORMATION
  Report Type: 
  Country: None (occurrence: None)
  Receive Date: 20120730
  Receipt Date: 20120719
  Transmission Date: 20120928
  Serious: Yes (Hospitalization, Other)
  Sender: FDA-Public Use
  Company Number: CN-ASTRAZENECA-2010SE59053

PATIENT
  Age: 829 Month
  Sex: Male

DRUGS (6)
  1. BRICANYL [Suspect]
     Indication: CHRONIC OBSTRUCTIVE PULMONARY DISEASE
     Route: 055
     Dates: start: 20101130, end: 20101214
  2. BROMHEXINE HYDROCHLORIDE [Concomitant]
  3. IMIPENEM AND CILASTATIN SODIUM [Concomitant]
  4. PULMICORT [Suspect]
     Indication: CHRONIC OBSTRUCTIVE PULMONARY DISEASE
     Route: 055
     Dates: start: 20101130, end: 20101214
  5. SOLU-MEDROL [Concomitant]
     Route: 042
  6. PIPERACILLIN AND TAZOBACTAM [Concomitant]

REACTIONS (1)
  - HAEMATEMESIS [None]
